FAERS Safety Report 15776740 (Version 2)
Quarter: 2019Q1

REPORT INFORMATION
  Report Type: Spontaneous
  Country: US (occurrence: US)
  Receive Date: 20181231
  Receipt Date: 20190128
  Transmission Date: 20190417
  Serious: Yes (Hospitalization)
  Sender: FDA-Public Use
  Company Number: US-PFIZER INC-2018528053

PATIENT
  Age: 67 Year
  Sex: Male
  Weight: 92.99 kg

DRUGS (22)
  1. VIIBRYD [Concomitant]
     Active Substance: VILAZODONE HYDROCHLORIDE
     Indication: BIPOLAR DISORDER
     Dosage: 40 MG, 1X/DAY (40 MG TABLET BY MOUTH ONCE IN MORNING)
     Route: 048
     Dates: start: 201707
  2. VIIBRYD [Concomitant]
     Active Substance: VILAZODONE HYDROCHLORIDE
     Indication: ANXIETY
  3. LIPITOR [Concomitant]
     Active Substance: ATORVASTATIN CALCIUM
     Dosage: 40 MG, 1X/DAY (ONE TABLET AT BEDTIME)
  4. VITAMIN E [Concomitant]
     Active Substance: .ALPHA.-TOCOPHEROL
     Dosage: 200 IU, DAILY
  5. AMILORIDE HCL/HCTZ [Concomitant]
     Indication: FLUID RETENTION
  6. LYRICA [Suspect]
     Active Substance: PREGABALIN
     Dosage: 75 MG, 2X/DAY
     Dates: start: 2017
  7. LYRICA [Suspect]
     Active Substance: PREGABALIN
     Dosage: 100 MG, 2X/DAY (ONE CAPSULE IN THE MORNING AND 1 CAPSULE ABOUT MID AFTERNOON)
     Route: 048
     Dates: start: 20180217
  8. CELEBREX [Concomitant]
     Active Substance: CELECOXIB
     Dosage: 200 MG, 1X/DAY (ONCE IN MORNING)
     Dates: start: 201801
  9. PROVIGIL [MODAFINIL] [Concomitant]
     Dosage: 400 MG, 1X/DAY (2 TABS 1 TIME PER DAY)
     Dates: start: 201802
  10. TAMSULOSIN [Concomitant]
     Active Substance: TAMSULOSIN
     Indication: BENIGN PROSTATIC HYPERPLASIA
     Dosage: 0.4 MG, 1X/DAY (ONE CAP AT BEDTIME)
  11. LISINOPRIL. [Concomitant]
     Active Substance: LISINOPRIL
     Indication: BLOOD PRESSURE ABNORMAL
     Dosage: 20 MG, 1X/DAY (IN MORNING)
  12. ASPIRIN 81 [Concomitant]
     Active Substance: ASPIRIN
     Indication: PROPHYLAXIS
     Dosage: 81 MG, 1X/DAY (IN MORNING)
     Dates: start: 2010
  13. VITAMIN B COMPLEX WITH C [Concomitant]
     Active Substance: ASCORBIC ACID\CALCIUM PANTOTHENATE\CYANOCOBALAMIN\NIACINAMIDE\PYRIDOXINE HYDROCHLORIDE\RIBOFLAVIN\THIAMINE MONONITRATE
     Dosage: 150 MG, 1X/DAY (IN MID AFTERNOON)
  14. AMBIEN [Concomitant]
     Active Substance: ZOLPIDEM TARTRATE
     Dosage: 10 MG, 1X/DAY (AT BEDTIME)
  15. FISH OIL [Concomitant]
     Active Substance: FISH OIL
     Indication: ARTHROPATHY
     Dosage: 2000 MG, 1X/DAY (EPA 600MG; DHA 400MG) (IN MORNING)
  16. VITAMIN D3 [Concomitant]
     Active Substance: CHOLECALCIFEROL
     Dosage: 1500 IU, 1X/DAY (DAILY IN MORNING)
  17. N-ACETYLCYSTEINE [Concomitant]
     Active Substance: ACETYLCYSTEINE
     Dosage: 600 MG, DAILY
  18. VIIBRYD [Concomitant]
     Active Substance: VILAZODONE HYDROCHLORIDE
     Indication: DEPRESSION
  19. AMILORIDE HCL/HCTZ [Concomitant]
     Indication: BLOOD POTASSIUM ABNORMAL
     Dosage: UNK UNK, 1X/DAY [AMILORIDE HYDROCHLORIDE: 2.5 MG/ HYDROCHLOROTHIAZIDE: 25 MG] (AT BEDTIME)
  20. LYRICA [Suspect]
     Active Substance: PREGABALIN
     Indication: FIBROMYALGIA
     Dosage: UNK
     Dates: start: 201707
  21. CELEBREX [Concomitant]
     Active Substance: CELECOXIB
     Indication: OSTEOARTHRITIS
     Dosage: UNK
     Dates: start: 201707
  22. MAGNESIUM OXIDE. [Concomitant]
     Active Substance: MAGNESIUM OXIDE
     Dosage: 400 MG, 1X/DAY  (MID-AFTERNOON)

REACTIONS (4)
  - Product dose omission [Recovered/Resolved]
  - Musculoskeletal pain [Recovered/Resolved]
  - Withdrawal syndrome [Recovered/Resolved]
  - Feeling abnormal [Recovered/Resolved]

NARRATIVE: CASE EVENT DATE: 201806
